FAERS Safety Report 14769306 (Version 2)
Quarter: 2018Q2

REPORT INFORMATION
  Report Type: Spontaneous
  Country: DE (occurrence: DE)
  Receive Date: 20180417
  Receipt Date: 20180427
  Transmission Date: 20180711
  Serious: Yes (Hospitalization)
  Sender: FDA-Public Use
  Company Number: DE-IPSEN BIOPHARMACEUTICALS, INC.-2018-05599

PATIENT
  Sex: Female

DRUGS (4)
  1. DYSPORT [Suspect]
     Active Substance: ABOBOTULINUMTOXINA
     Indication: MULTIPLE SCLEROSIS
     Dosage: BETWEEN 1100 AND 1600 UNITS
     Route: 030
  2. DYSPORT [Suspect]
     Active Substance: ABOBOTULINUMTOXINA
     Indication: MULTIPLE SCLEROSIS
     Dosage: BETWEEN 1100 AND 1600 UNITS
     Route: 030
  3. DYSPORT [Suspect]
     Active Substance: ABOBOTULINUMTOXINA
     Dosage: BETWEEN 1100 AND 1600 UNITS
     Route: 030
  4. DYSPORT [Suspect]
     Active Substance: ABOBOTULINUMTOXINA
     Dosage: 1600 UNITS
     Route: 030
     Dates: start: 201803, end: 201803

REACTIONS (8)
  - Dysphagia [Unknown]
  - Dysarthria [Unknown]
  - Asthenia [Unknown]
  - Paresis [Unknown]
  - Neuromuscular toxicity [Unknown]
  - Muscular weakness [Unknown]
  - Off label use [Unknown]
  - Eyelid ptosis [Unknown]

NARRATIVE: CASE EVENT DATE: 2018
